FAERS Safety Report 6690630-9 (Version None)
Quarter: 2010Q2

REPORT INFORMATION
  Report Type: 
  Country: None (occurrence: None)
  Receive Date: 20100421
  Receipt Date: 20100412
  Transmission Date: 20101027
  Serious: Yes (Death, Hospitalization, Other)
  Sender: FDA-Public Use
  Company Number: FR-GENENTECH-298048

PATIENT
  Age: 93 Year
  Sex: Male

DRUGS (6)
  1. MABTHERA [Suspect]
     Indication: DIFFUSE LARGE B-CELL LYMPHOMA
     Dosage: 375 MG/M2, UNK
     Route: 065
  2. PREDNISONE TAB [Suspect]
     Indication: DIFFUSE LARGE B-CELL LYMPHOMA
     Dosage: 40 MG/M2, UNK
     Route: 065
  3. DOXORUBICIN HCL [Suspect]
     Indication: DIFFUSE LARGE B-CELL LYMPHOMA
     Dosage: 25 MG/M2, UNK
     Route: 065
  4. VINCRISTINE [Suspect]
     Indication: DIFFUSE LARGE B-CELL LYMPHOMA
     Dosage: 1 MG/M2, UNK
     Route: 065
  5. CYCLOPHOSPHAMIDE [Suspect]
     Indication: DIFFUSE LARGE B-CELL LYMPHOMA
     Dosage: 400 MG/M2, UNK
     Route: 065
  6. PEGFILGRASTIM [Concomitant]
     Indication: PROPHYLAXIS
     Dosage: UNK

REACTIONS (5)
  - ATRIAL FIBRILLATION [None]
  - BEDRIDDEN [None]
  - BRONCHOPNEUMOPATHY [None]
  - CARDIAC FAILURE CONGESTIVE [None]
  - CELLULITIS GANGRENOUS [None]
